FAERS Safety Report 5252641-X (Version None)
Quarter: 2007Q1

REPORT INFORMATION
  Report Type: 
  Country: None (occurrence: None)
  Receive Date: 20070301
  Receipt Date: 20061031
  Transmission Date: 20070707
  Serious: No
  Sender: FDA-Public Use
  Company Number: US-GLAXOSMITHKLINE-A0625604A

PATIENT
  Age: 39 Year
  Sex: Female

DRUGS (6)
  1. LAMICTAL [Suspect]
     Dosage: 100MG TWICE PER DAY
     Route: 048
     Dates: start: 20051001
  2. LEXAPRO [Concomitant]
  3. VISTARIL [Concomitant]
  4. ABILIFY [Concomitant]
  5. SINGULAIR [Concomitant]
  6. PREVACID [Concomitant]

REACTIONS (1)
  - ALOPECIA [None]
